FAERS Safety Report 22750713 (Version 5)
Quarter: 2023Q4

REPORT INFORMATION
  Report Type: Report from Study
  Country: US (occurrence: US)
  Receive Date: 20230726
  Receipt Date: 20231103
  Transmission Date: 20240110
  Serious: Yes (Death, Hospitalization, Other)
  Sender: FDA-Public Use
  Company Number: US-002147023-NVSC2023US162095

PATIENT
  Age: 62 Year
  Sex: Female
  Weight: 71.655 kg

DRUGS (34)
  1. TABRECTA [Suspect]
     Active Substance: CAPMATINIB
     Indication: Breast cancer metastatic
     Dosage: 300 MG, BID
     Route: 048
     Dates: start: 20230623, end: 20230714
  2. NERATINIB [Suspect]
     Active Substance: NERATINIB
     Indication: Breast cancer metastatic
     Dosage: 120 MG, QD X 7 DAYS
     Route: 048
     Dates: start: 20230623, end: 20230629
  3. NERATINIB [Suspect]
     Active Substance: NERATINIB
     Dosage: 160 MG, QD
     Route: 048
     Dates: start: 20230630, end: 20230714
  4. XARELTO [Concomitant]
     Active Substance: RIVAROXABAN
     Indication: Pulmonary embolism
     Dosage: 30D START TABLET, TAKE 15 MG-20MG BY MOUTH TWICE DAILY
     Route: 048
     Dates: start: 20230528, end: 20230714
  5. XARELTO [Concomitant]
     Active Substance: RIVAROXABAN
     Indication: Deep vein thrombosis
     Dosage: 20 MG, BID BY MOUTH
     Route: 065
     Dates: start: 20230714
  6. EFFEXOR [Concomitant]
     Active Substance: VENLAFAXINE HYDROCHLORIDE
     Indication: Depression
     Dosage: 37.5 MG, TAKE 1 PILL BY MOTH AT BEDTIME
     Route: 065
  7. MACRODANTIN [Concomitant]
     Active Substance: NITROFURANTOIN
     Indication: Urinary tract infection
     Dosage: 100 MG, TID
     Route: 048
     Dates: start: 20230712
  8. FENTANYL [Concomitant]
     Active Substance: FENTANYL\FENTANYL CITRATE
     Indication: Pain
     Dosage: 50MCG/HR, 1 PATCH EVERY 3 DAYS
     Route: 065
     Dates: start: 20230615, end: 20230713
  9. FENTANYL [Concomitant]
     Active Substance: FENTANYL\FENTANYL CITRATE
     Dosage: 75 MCG/HR PATCH, 1 PATCH EVERY 3 DAYS
     Route: 065
     Dates: start: 20230712
  10. NARCAN [Concomitant]
     Active Substance: NALOXONE HYDROCHLORIDE
     Indication: Overdose
     Dosage: 4 MG, 1 SPRAY (4 MG) INTO EACH NOSTRIL ONCE AS NEEDED
     Dates: start: 20230612
  11. XYLOCAINE [Concomitant]
     Active Substance: LIDOCAINE HYDROCHLORIDE
     Indication: Product used for unknown indication
     Dosage: APPLY 1 APPLICATION TOPICALLY TO AFFECTED AREA(S) AS NEEDED
     Route: 061
  12. ULTRAM [Concomitant]
     Active Substance: TRAMADOL HYDROCHLORIDE
     Indication: Pain
     Dosage: 50 MG, TAKE 2 TABLETS (100 MG) BY MOUTH EVERY 4 (FOUR) HOURS AS NEEDED
     Route: 048
     Dates: start: 20230523
  13. COZAAR [Concomitant]
     Active Substance: LOSARTAN POTASSIUM
     Indication: Hypertension
     Dosage: 25 MG TABLET, TAKE 1 TABLET (25 MG) BY MOUTH DAILY
     Route: 048
     Dates: start: 202211
  14. XIIDRA [Concomitant]
     Active Substance: LIFITEGRAST
     Indication: Dry eye
     Dosage: 1 DROP TO BOTH EYES EVERY 12 (TWELVE) HOURS
     Route: 065
     Dates: start: 202211
  15. NEURONTIN [Concomitant]
     Active Substance: GABAPENTIN
     Indication: Neuropathy peripheral
     Dosage: 400 MG, BID, 1 CAPSULE (400 MG) BY MOUTH TWICE DAILY
     Route: 048
     Dates: start: 201805
  16. SYNTHROID [Concomitant]
     Active Substance: LEVOTHYROXINE SODIUM
     Indication: Hypothyroidism
     Dosage: 88 UG, QD, 1 TABLET (88 MCG) BY MOUTH DAILY
     Route: 048
     Dates: start: 201711
  17. ZOFRAN [Concomitant]
     Active Substance: ONDANSETRON HYDROCHLORIDE
     Indication: Nausea
     Dosage: 8 MG, 1 TABLET (8 MG) ON THE TONGUE EVERY 8 (EIGHT) HOURS AS NEEDED
     Route: 048
     Dates: start: 201805
  18. ZOFRAN [Concomitant]
     Active Substance: ONDANSETRON HYDROCHLORIDE
     Indication: Vomiting
     Dosage: 8 MG, EVERY 12 HOURS
     Route: 065
     Dates: start: 20230623
  19. DOCONEXENT [Concomitant]
     Active Substance: DOCONEXENT
     Indication: Supplementation therapy
     Dosage: 1,000 MG (120 MG-180 MG) CAP, TAKE 1 TABLET BY MOUTH DAILY
     Route: 048
     Dates: start: 201805
  20. VITAMIN D3 [Concomitant]
     Active Substance: CHOLECALCIFEROL
     Indication: Supplementation therapy
     Dosage: 50 UG, QD, (2,000 UNIT) CAPSULE, TAKE 1 TABLET BY MOUTH DAILY
     Route: 048
     Dates: start: 201805
  21. CALCIUM [Concomitant]
     Active Substance: CALCIUM
     Indication: Supplementation therapy
     Dosage: 500 MG, TAKE 1 TABLET BY MOUTH TWICE A DAY
     Route: 048
     Dates: start: 201805
  22. MAGNESIUM OXIDE [Concomitant]
     Active Substance: MAGNESIUM OXIDE
     Indication: Supplementation therapy
     Dosage: 500 MG, TAKE 1 TABLET (500 MG) BY MOUTH DAILY
     Route: 048
     Dates: start: 201805
  23. KENALOG [Concomitant]
     Active Substance: TRIAMCINOLONE ACETONIDE
     Indication: Arthritis
     Dosage: 40 MG, Q3MO
     Route: 065
     Dates: start: 201803
  24. KENALOG [Concomitant]
     Active Substance: TRIAMCINOLONE ACETONIDE
     Dosage: 40 MG, Q3MO
     Route: 065
     Dates: start: 202101
  25. COMPAZINE [Concomitant]
     Active Substance: PROCHLORPERAZINE MALEATE
     Indication: Nausea
     Dosage: 10 MG, Q6H, TAKE 1 TABLET BY MOUTH EVERY 6 HOURS AS NEEDED
     Route: 048
     Dates: start: 20230623
  26. COMPAZINE [Concomitant]
     Active Substance: PROCHLORPERAZINE MALEATE
     Indication: Vomiting
  27. IMODIUM [Concomitant]
     Active Substance: LOPERAMIDE HYDROCHLORIDE
     Indication: Diarrhoea
     Dosage: 3 MG, TID, TAKE 2 PILLS BY MOUTH 3 TIMES AS NEEDED
     Route: 065
     Dates: start: 20230623
  28. MIRALAX [Concomitant]
     Active Substance: POLYETHYLENE GLYCOL 3350
     Indication: Constipation
     Dosage: TAKE 1 DOSE AS NEEDED
     Route: 065
     Dates: start: 20230626
  29. DULCOLAX [Concomitant]
     Indication: Constipation
     Dosage: SUPPOSITORY AS NEEDED
     Route: 065
     Dates: start: 20230626
  30. LIDOCAINE [Concomitant]
     Active Substance: LIDOCAINE
     Indication: Drug therapy
     Dosage: 20MG/ML, SWISH AND SPIT 15 ML EVERY 6 HRS
     Route: 065
     Dates: start: 201805
  31. LIDOCAINE [Concomitant]
     Active Substance: LIDOCAINE
     Indication: Oral pain
     Dosage: 20 MG/ML EVERY 6 HOURS, MOUTH WASH
     Route: 065
     Dates: start: 20230630
  32. LEXAPRO [Concomitant]
     Active Substance: ESCITALOPRAM OXALATE
     Indication: Depression
     Dosage: 10 MG, QD
     Route: 065
     Dates: start: 201805, end: 20230622
  33. DULOXETINE [Concomitant]
     Active Substance: DULOXETINE
     Indication: Depression
     Dosage: 30 MG, 1 CAPSULE BY MONTH DAILY
     Route: 065
     Dates: start: 20230622, end: 20230630
  34. LOMOTIL [Concomitant]
     Active Substance: ATROPINE SULFATE\DIPHENOXYLATE HYDROCHLORIDE
     Indication: Diarrhoea
     Dosage: 2.5 MG
     Route: 065
     Dates: start: 20230623

REACTIONS (4)
  - Hypoalbuminaemia [Recovering/Resolving]
  - Breast cancer metastatic [Fatal]
  - Malignant neoplasm progression [Fatal]
  - Pneumonia [Not Recovered/Not Resolved]

NARRATIVE: CASE EVENT DATE: 20230718
